FAERS Safety Report 5613763-4 (Version None)
Quarter: 2008Q1

REPORT INFORMATION
  Report Type: 
  Country: None (occurrence: None)
  Receive Date: 20080205
  Receipt Date: 20080130
  Transmission Date: 20080703
  Serious: Yes (Other)
  Sender: FDA-Public Use
  Company Number: GB-BRISTOL-MYERS SQUIBB COMPANY-14064216

PATIENT
  Age: 65 Year
  Sex: Male

DRUGS (3)
  1. CETUXIMAB [Suspect]
     Indication: COLORECTAL CANCER METASTATIC
  2. CAPECITABINE [Concomitant]
  3. OXALIPLATIN [Concomitant]

REACTIONS (3)
  - MUCOSAL INFLAMMATION [None]
  - NEUROPATHY PERIPHERAL [None]
  - RASH [None]
